FAERS Safety Report 7277148-X (Version None)
Quarter: 2011Q1

REPORT INFORMATION
  Report Type: 
  Country: None (occurrence: None)
  Receive Date: 20110207
  Receipt Date: 20110126
  Transmission Date: 20110831
  Serious: Yes (Other)
  Sender: FDA-Public Use
  Company Number: PT-AMGEN-PRTSP2010011625

PATIENT
  Age: 23 Year
  Sex: Female

DRUGS (4)
  1. BENOXYGEL [Concomitant]
     Dosage: UNK
     Dates: start: 20090101
  2. ENBREL [Suspect]
     Indication: ANKYLOSING SPONDYLITIS
     Dosage: 50 MG, WEEKLY
     Dates: end: 20101101
  3. DIANE [Concomitant]
     Dosage: UNK
     Dates: start: 20090101
  4. NAPROXEN [Concomitant]
     Dosage: 500 MG, UNK
     Dates: start: 20100101

REACTIONS (3)
  - OPHTHALMOPLEGIA [None]
  - ANKYLOSING SPONDYLITIS [None]
  - PINEAL GLAND CYST [None]
